FAERS Safety Report 12704319 (Version 1)
Quarter: 2016Q3

REPORT INFORMATION
  Report Type: Other
  Country: NL (occurrence: NL)
  Receive Date: 20160831
  Receipt Date: 20160831
  Transmission Date: 20161109
  Serious: Yes (Other)
  Sender: FDA-Public Use
  Company Number: NL-APOTEX-2016AP010781

PATIENT
  Age: 46 Year
  Sex: Male

DRUGS (1)
  1. ATORVASTATINE APOTEX FILMOMHULDE TABLETTEN [Suspect]
     Active Substance: ATORVASTATIN
     Indication: PRODUCT USED FOR UNKNOWN INDICATION
     Dosage: 20 MG/DAY
     Route: 065

REACTIONS (1)
  - Muscle rupture [Recovered/Resolved]
